FAERS Safety Report 4968160-1 (Version None)
Quarter: 2006Q2

REPORT INFORMATION
  Report Type: 
  Country: None (occurrence: None)
  Receive Date: 20060405
  Receipt Date: 20060324
  Transmission Date: 20061013
  Serious: Yes (Death, Hospitalization, Disabling)
  Sender: FDA-Public Use
  Company Number: GXKR2006NL01721

PATIENT
  Age: 21 Year
  Sex: Female

DRUGS (3)
  1. CARBOPLATIN (NGX) (CARBOPLATIN) [Suspect]
     Indication: MEDULLOBLASTOMA
     Dosage: 500 MG/M2, QD, UNK
  2. ETOPOSIDE (NGX)(ETOPOSIDE) [Suspect]
     Indication: MEDULLOBLASTOMA
     Dosage: 100 MG/M2, QD, UNK
  3. THIOTEPA [Suspect]
     Indication: MEDULLOBLASTOMA
     Dosage: 300 MG/M2, QD, UNK

REACTIONS (24)
  - ANXIETY [None]
  - APALLIC SYNDROME [None]
  - BACTERIA BLOOD IDENTIFIED [None]
  - BLOOD ALKALINE PHOSPHATASE INCREASED [None]
  - BLOOD BILIRUBIN INCREASED [None]
  - BRADYCARDIA [None]
  - CEREBRAL ATROPHY [None]
  - COGNITIVE DISORDER [None]
  - CORYNEBACTERIUM INFECTION [None]
  - DIARRHOEA [None]
  - DYSPHAGIA [None]
  - ENCEPHALOPATHY [None]
  - GAMMA-GLUTAMYLTRANSFERASE INCREASED [None]
  - HYDROCEPHALUS [None]
  - HYPERTONIA [None]
  - HYPOTENSION [None]
  - MUCOSAL INFLAMMATION [None]
  - NEOPLASM RECURRENCE [None]
  - PERICARDIAL EFFUSION [None]
  - PLEURAL EFFUSION [None]
  - PYREXIA [None]
  - SEPSIS [None]
  - SKIN TOXICITY [None]
  - STEM CELL TRANSPLANT [None]
